FAERS Safety Report 16720411 (Version 1)
Quarter: 2019Q4

REPORT INFORMATION
  Report Type: Spontaneous
  Country: US (occurrence: US)
  Receive Date: 20190819
  Receipt Date: 20190819
  Transmission Date: 20200122
  Serious: No
  Sender: FDA-Public Use
  Company Number: None

PATIENT
  Age: 49 Year
  Sex: Female

DRUGS (10)
  1. SODIUME CHLORIDE 7% NEB [Concomitant]
  2. XOPENEX 0.63 MG/3ML NEB [Concomitant]
  3. PREDNISONE 5MG [Concomitant]
     Active Substance: PREDNISONE
  4. SODIUM CHLORIDE 0.9% NEB [Concomitant]
  5. PULMOZYME 1MG/ML NEB [Concomitant]
  6. KALYDECO [Suspect]
     Active Substance: IVACAFTOR
     Indication: CYSTIC FIBROSIS
     Route: 048
  7. PANTOPRAZOLE 20MG [Concomitant]
     Active Substance: PANTOPRAZOLE SODIUM
  8. COLISTIMETHATE 150 MG NEB [Concomitant]
  9. LUNESTA 3 MG TABLET [Concomitant]
  10. AZITHROMYCIN 250MG TAB [Concomitant]

REACTIONS (2)
  - Haemoptysis [None]
  - Chest discomfort [None]

NARRATIVE: CASE EVENT DATE: 20190819
